FAERS Safety Report 6804434-7 (Version None)
Quarter: 2010Q2

REPORT INFORMATION
  Report Type: 
  Country: None (occurrence: None)
  Receive Date: 20100628
  Receipt Date: 20070529
  Transmission Date: 20101027
  Serious: No
  Sender: FDA-Public Use
  Company Number: US-PFIZER INC-2007023239

PATIENT
  Sex: Female
  Weight: 63.5 kg

DRUGS (6)
  1. GEODON [Suspect]
     Indication: BIPOLAR DISORDER
     Dates: start: 20070307
  2. TOPAMAX [Concomitant]
  3. TEGRETOL [Concomitant]
  4. OMEGA-3 TRIGLYCERIDES [Concomitant]
  5. CHOLESTEROL [Concomitant]
  6. INDERAL [Concomitant]

REACTIONS (6)
  - AGGRESSION [None]
  - ANXIETY [None]
  - DIARRHOEA [None]
  - FEELING ABNORMAL [None]
  - HYPERPHAGIA [None]
  - NERVOUSNESS [None]
